FAERS Safety Report 5832577-3 (Version None)
Quarter: 2008Q3

REPORT INFORMATION
  Report Type: 
  Country: None (occurrence: None)
  Receive Date: 20080804
  Receipt Date: 20080614
  Transmission Date: 20090109
  Serious: Yes (Life-Threatening)
  Sender: FDA-Public Use
  Company Number: PHEH2008US06780

PATIENT
  Sex: Female

DRUGS (7)
  1. RECLAST [Suspect]
     Indication: OSTEOPOROSIS
     Dosage: 5 MG, ONCE/SINGLE
     Route: 042
     Dates: start: 20080108, end: 20080108
  2. EVISTA [Concomitant]
  3. SYNTHROID [Concomitant]
  4. CALCIUM [Concomitant]
  5. WARFARIN SODIUM [Concomitant]
  6. BETAPACE [Concomitant]
  7. VITAMIN D [Concomitant]

REACTIONS (1)
  - ATRIAL TACHYCARDIA [None]
